FAERS Safety Report 4366261-2 (Version None)
Quarter: 2004Q2

REPORT INFORMATION
  Report Type: 
  Country: None (occurrence: None)
  Receive Date: 20040524
  Receipt Date: 20040513
  Transmission Date: 20050107
  Serious: Yes (Hospitalization)
  Sender: FDA-Public Use
  Company Number: 2003152174IT

PATIENT
  Age: 73 Year
  Sex: Female

DRUGS (3)
  1. CABERGOLINE [Suspect]
     Indication: PARKINSON'S DISEASE
     Dosage: 6 MG, ORAL
     Route: 048
     Dates: start: 20010101, end: 20030307
  2. SINEMET [Concomitant]
  3. CARBIDOPA AND LEVODOPA [Concomitant]

REACTIONS (3)
  - ACUTE RESPIRATORY FAILURE [None]
  - PNEUMONITIS [None]
  - PULMONARY OEDEMA [None]
